FAERS Safety Report 17525910 (Version 1)
Quarter: 2020Q1

REPORT INFORMATION
  Report Type: Spontaneous
  Country: US (occurrence: US)
  Receive Date: 20200310
  Receipt Date: 20200310
  Transmission Date: 20200409
  Serious: No
  Sender: FDA-Public Use
  Company Number: US-TEVA-2020-US-1196890

PATIENT
  Age: 29 Year
  Sex: Female

DRUGS (1)
  1. KETOROLAC [Suspect]
     Active Substance: KETOROLAC TROMETHAMINE
     Indication: MENSTRUAL DISCOMFORT
     Dosage: OCCASIONAL USE
     Route: 065

REACTIONS (1)
  - Chronic gastritis [Unknown]
